FAERS Safety Report 5626536-3 (Version None)
Quarter: 2008Q1

REPORT INFORMATION
  Report Type: 
  Country: None (occurrence: None)
  Receive Date: 20080214
  Receipt Date: 20080211
  Transmission Date: 20080703
  Serious: Yes (Other)
  Sender: FDA-Public Use
  Company Number: US-RANBAXY-2007US-09204

PATIENT

DRUGS (1)
  1. ISOTRETINOIN [Suspect]
     Indication: DRUG USE FOR UNKNOWN INDICATION
     Dosage: UNK
     Route: 048
     Dates: end: 20070814

REACTIONS (5)
  - DEAFNESS [None]
  - EAR INFECTION [None]
  - NASAL CONGESTION [None]
  - NASOPHARYNGITIS [None]
  - TINNITUS [None]
